FAERS Safety Report 7867335-1 (Version None)
Quarter: 2011Q4

REPORT INFORMATION
  Report Type: 
  Country: None (occurrence: None)
  Receive Date: 20111028
  Receipt Date: 20111017
  Transmission Date: 20120403
  Serious: Yes (Hospitalization)
  Sender: FDA-Public Use
  Company Number: JP-PFIZER INC-2011262583

PATIENT
  Age: 70 Year
  Sex: Female

DRUGS (8)
  1. RISPERDAL [Concomitant]
     Route: 048
  2. HALCION [Concomitant]
     Route: 048
  3. CELECOXIB [Suspect]
     Dosage: UNK
     Route: 048
     Dates: start: 20110815, end: 20110916
  4. RHYTHMY [Concomitant]
     Route: 048
  5. AMLODIPINE [Concomitant]
  6. GOSHAJINKIGAN [Suspect]
     Dosage: UNK
     Route: 048
     Dates: start: 20110819, end: 20110916
  7. LEVOTHYROXINE SODIUM [Concomitant]
     Route: 048
  8. INDOMETHACIN [Concomitant]

REACTIONS (1)
  - LIVER DISORDER [None]
